FAERS Safety Report 9626905 (Version 3)
Quarter: 2014Q1

REPORT INFORMATION
  Report Type: Spontaneous
  Country: US (occurrence: None)
  Receive Date: 20131011
  Receipt Date: 20140122
  Transmission Date: 20141002
  Serious: Yes (Life-Threatening, Hospitalization, Other)
  Sender: FDA-Public Use
  Company Number: ADR-2013-01815

PATIENT
  Sex: Male

DRUGS (2)
  1. LIORESAL INTRATHECAL (BACLOFEN INJECTION) 2000MCG/ML [Suspect]
     Indication: MUSCLE SPASTICITY
  2. ORAL BACLOFEN [Suspect]

REACTIONS (24)
  - Pyrexia [None]
  - Pain [None]
  - Flushing [None]
  - Erythema [None]
  - Muscle spasticity [None]
  - Therapeutic response decreased [None]
  - Lethargy [None]
  - Somnolence [None]
  - Convulsion [None]
  - Muscle spasms [None]
  - Coma [None]
  - Device end of service [None]
  - Device breakage [None]
  - Device occlusion [None]
  - Abasia [None]
  - Faecal incontinence [None]
  - Constipation [None]
  - Weight decreased [None]
  - Aphagia [None]
  - Dysphagia [None]
  - Bedridden [None]
  - Muscle atrophy [None]
  - Patella fracture [None]
  - Grand mal convulsion [None]
